FAERS Safety Report 8602501-9 (Version None)
Quarter: 2012Q3

REPORT INFORMATION
  Report Type: 
  Country: None (occurrence: None)
  Receive Date: 20120817
  Receipt Date: 20120803
  Transmission Date: 20120928
  Serious: Yes (Death)
  Sender: FDA-Public Use
  Company Number: FR-ROCHE-1097976

PATIENT
  Sex: Male

DRUGS (18)
  1. HEPARIN CALCIUM [Suspect]
     Indication: PROPHYLAXIS
     Route: 042
     Dates: end: 20120321
  2. LEVOTHYROXINE SODIUM [Suspect]
     Indication: PRODUCT USED FOR UNKNOWN INDICATION
     Route: 042
  3. TRANXENE [Suspect]
     Indication: ANXIETY
     Route: 048
     Dates: start: 20120313, end: 20120316
  4. PLITICAN [Suspect]
     Indication: PROPHYLAXIS
     Route: 042
     Dates: start: 20120314, end: 20120319
  5. OMEPRAZOLE [Suspect]
     Indication: PROPHYLAXIS
     Route: 042
  6. TIORFAN [Suspect]
     Indication: PROPHYLAXIS
     Route: 048
     Dates: end: 20120425
  7. NICARDIPINE HCL [Suspect]
     Indication: HYPERTENSION
     Route: 048
     Dates: end: 20120415
  8. ALBUMIN (HUMAN) [Suspect]
     Indication: PRODUCT USED FOR UNKNOWN INDICATION
     Route: 042
     Dates: end: 20120306
  9. VALGANCICLOVIR [Suspect]
     Indication: PROPHYLAXIS
     Route: 048
     Dates: start: 20120310, end: 20120316
  10. VFEND [Suspect]
     Indication: PROPHYLAXIS
     Route: 042
  11. SOLU-MEDROL [Suspect]
     Indication: IMMUNOSUPPRESSION
     Route: 042
  12. SANDIMMUNE [Suspect]
     Indication: PROPHYLAXIS
     Route: 042
     Dates: start: 20120123, end: 20120404
  13. FOLIC ACID [Suspect]
     Indication: VITAMIN B12 DEFICIENCY
     Dates: end: 20120405
  14. EFFEXOR [Suspect]
     Indication: PRODUCT USED FOR UNKNOWN INDICATION
     Route: 048
     Dates: start: 20120313, end: 20120322
  15. DELURSAN [Suspect]
     Indication: CHOLESTASIS
     Route: 048
  16. ZOLPIDEM [Suspect]
     Indication: INSOMNIA
     Route: 048
     Dates: end: 20120318
  17. PHENOXYMETHYL PENICILLIN [Suspect]
     Indication: PROPHYLAXIS
     Route: 048
     Dates: end: 20120322
  18. BACTRIM DS [Suspect]
     Indication: PROPHYLAXIS
     Route: 048
     Dates: end: 20120405

REACTIONS (1)
  - THROMBOTIC MICROANGIOPATHY [None]
